FAERS Safety Report 6404546-6 (Version None)
Quarter: 2009Q4

REPORT INFORMATION
  Report Type: 
  Country: None (occurrence: None)
  Receive Date: 20091016
  Receipt Date: 20091005
  Transmission Date: 20100525
  Serious: Yes (Other)
  Sender: FDA-Public Use
  Company Number: PHHY2009IT38667

PATIENT
  Sex: Female

DRUGS (2)
  1. ZOMETA [Suspect]
     Indication: MULTIPLE MYELOMA
     Dosage: 4 MG, QMO
     Route: 042
     Dates: start: 20040101, end: 20050930
  2. THALIDOMIDE [Concomitant]
     Dosage: UNK
     Dates: start: 20050901

REACTIONS (2)
  - MAXILLOFACIAL OPERATION [None]
  - OSTEONECROSIS [None]
